FAERS Safety Report 19723550 (Version 2)
Quarter: 2021Q3

REPORT INFORMATION
  Report Type: Spontaneous
  Country: US (occurrence: US)
  Receive Date: 20210820
  Receipt Date: 20210907
  Transmission Date: 20211014
  Serious: Yes (Other)
  Sender: FDA-Public Use
  Company Number: US-AUROBINDO-AUR-APL-2021-035645

PATIENT
  Sex: Male

DRUGS (1)
  1. RANITIDINE. [Suspect]
     Active Substance: RANITIDINE
     Indication: PRODUCT USED FOR UNKNOWN INDICATION
     Dosage: UNK
     Route: 048
     Dates: start: 2005, end: 2010

REACTIONS (8)
  - Oesophageal carcinoma [Unknown]
  - Pain [Unknown]
  - Deformity [Unknown]
  - Emotional distress [Unknown]
  - Economic problem [Unknown]
  - Injury [Unknown]
  - Anxiety [Unknown]
  - Malaise [Unknown]

NARRATIVE: CASE EVENT DATE: 201008
